FAERS Safety Report 8691407 (Version 2)
Quarter: 2013Q1

REPORT INFORMATION
  Report Type: Report from Study
  Country: DE (occurrence: DE)
  Receive Date: 20120730
  Receipt Date: 20130228
  Transmission Date: 20140127
  Serious: Yes (Hospitalization)
  Sender: FDA-Public Use
  Company Number: DE-MPIJNJ-2012-05080

PATIENT
  Sex: 0

DRUGS (11)
  1. VELCADE [Suspect]
     Indication: PLASMA CELL MYELOMA
     Dosage: 2.6 MG, UNK
     Route: 058
     Dates: start: 20120703, end: 20120713
  2. AMLODIPIN                          /00972401/ [Concomitant]
     Indication: HYPERTONIA
     Dosage: 10 MG, QD
     Dates: end: 20120713
  3. CANDESARTAN CILEXETIL [Concomitant]
     Indication: HYPERTONIA
     Dosage: 16 MG, QD
     Dates: end: 20120723
  4. BELOC ZOK [Concomitant]
     Indication: HYPERTONIA
     Dosage: 23.75 MG, QD
     Dates: end: 20120713
  5. TORSEMIDE [Concomitant]
     Dosage: 10 MG, QD
  6. CALCIUM CITRATE W/COLECALCIFEROL [Concomitant]
     Dosage: 500 MG, BID
     Dates: end: 20120713
  7. PANTOPRAZOLE [Concomitant]
     Dosage: 40 MG, UNK
     Dates: end: 20120713
  8. SODIUM BICARBONATE [Concomitant]
     Dosage: UNK
     Dates: end: 20120713
  9. CALCIUM                            /00009901/ [Concomitant]
     Indication: RENAL DISORDER
     Dosage: 950 MG, UNK
     Dates: end: 20120713
  10. DEXAMETHASONE [Concomitant]
  11. CYCLOPHOSPHAMIDE [Concomitant]

REACTIONS (3)
  - Aphasia [Recovered/Resolved]
  - Speech disorder [Recovered/Resolved]
  - Dehydration [Recovered/Resolved]
